FAERS Safety Report 14540284 (Version 1)
Quarter: 2018Q1

REPORT INFORMATION
  Report Type: Other
  Country: None (occurrence: AU)
  Receive Date: 20180216
  Receipt Date: 20180216
  Transmission Date: 20180509
  Serious: Yes (Other)
  Sender: FDA-Public Use
  Company Number: AU-POPULATION COUNCIL, INC.-2042158

PATIENT
  Sex: Female

DRUGS (1)
  1. JADELLE [Suspect]
     Active Substance: LEVONORGESTREL
     Route: 059
     Dates: start: 201709

REACTIONS (3)
  - Device dislocation [None]
  - Pregnancy with implant contraceptive [None]
  - Drug ineffective [None]
